FAERS Safety Report 5508582-3 (Version None)
Quarter: 2007Q4

REPORT INFORMATION
  Report Type: 
  Country: None (occurrence: None)
  Receive Date: 20071031
  Receipt Date: 20070721
  Transmission Date: 20080405
  Serious: No
  Sender: FDA-Public Use
  Company Number: 2007PV033171

PATIENT
  Age: 44 Year
  Sex: Female

DRUGS (5)
  1. SYMLIN [Suspect]
     Indication: TYPE 1 DIABETES MELLITUS
     Dosage: 30 MCG; SC; 42 MCG; SC; 30 MCG; SC
     Route: 058
     Dates: start: 20070620, end: 20070701
  2. SYMLIN [Suspect]
     Indication: TYPE 1 DIABETES MELLITUS
     Dosage: 30 MCG; SC; 42 MCG; SC; 30 MCG; SC
     Route: 058
     Dates: start: 20070716, end: 20070701
  3. SYMLIN [Suspect]
     Indication: TYPE 1 DIABETES MELLITUS
     Dosage: 30 MCG; SC; 42 MCG; SC; 30 MCG; SC
     Route: 058
     Dates: start: 20070701
  4. LANTUS [Concomitant]
  5. HUMALOG [Concomitant]

REACTIONS (3)
  - FATIGUE [None]
  - NAUSEA [None]
  - VOMITING [None]
